FAERS Safety Report 19658478 (Version 12)
Quarter: 2023Q4

REPORT INFORMATION
  Report Type: Report from Study
  Country: US (occurrence: US)
  Receive Date: 20210805
  Receipt Date: 20231218
  Transmission Date: 20240110
  Serious: Yes (Death, Life-Threatening, Hospitalization, Other)
  Sender: FDA-Public Use
  Company Number: US-AUROBINDO-AUR-APL-2021-033364

PATIENT
  Age: 74 Year
  Sex: Male
  Weight: 75.4 kg

DRUGS (6)
  1. BELINOSTAT [Suspect]
     Active Substance: BELINOSTAT
     Indication: Acute myeloid leukaemia
     Dosage: 4000 MILLIGRAM
     Route: 065
     Dates: start: 20190624
  2. BELINOSTAT [Suspect]
     Active Substance: BELINOSTAT
     Dosage: 800 MILLIGRAM/SQ. METER, ONCE A DAY
     Route: 042
     Dates: start: 20190805, end: 20190806
  3. BELINOSTAT [Suspect]
     Active Substance: BELINOSTAT
     Dosage: 800 MILLIGRAM
     Route: 065
     Dates: start: 20190805
  4. PEVONEDISTAT HYDROCHLORIDE [Suspect]
     Active Substance: PEVONEDISTAT HYDROCHLORIDE
     Indication: Product used for unknown indication
     Dosage: 60 MILLIGRAM
     Route: 065
     Dates: start: 20190624
  5. PEVONEDISTAT HYDROCHLORIDE [Suspect]
     Active Substance: PEVONEDISTAT HYDROCHLORIDE
     Dosage: 25 MILLIGRAM/SQ. METER ON DAY 1,3 AND 5
     Route: 042
     Dates: start: 20190805
  6. PEVONEDISTAT HYDROCHLORIDE [Suspect]
     Active Substance: PEVONEDISTAT HYDROCHLORIDE
     Dosage: 20 MILLIGRAM
     Route: 065
     Dates: start: 20190805

REACTIONS (41)
  - Pneumonia [Fatal]
  - Sepsis [Fatal]
  - Febrile neutropenia [Unknown]
  - Hypoxia [Unknown]
  - Hypokalaemia [Unknown]
  - Anaemia [Unknown]
  - Alanine aminotransferase increased [Unknown]
  - Blood bilirubin increased [Unknown]
  - Hypocalcaemia [Unknown]
  - Nausea [Unknown]
  - Eczema [Unknown]
  - Pruritus [Unknown]
  - Dry skin [Unknown]
  - Abdominal pain [Unknown]
  - Hypotension [Unknown]
  - Fatigue [Unknown]
  - Chills [Unknown]
  - Insomnia [Unknown]
  - Wheezing [Unknown]
  - Proteinuria [Unknown]
  - Weight decreased [Unknown]
  - Hyponatraemia [Recovered/Resolved]
  - Hypomagnesaemia [Unknown]
  - Hypophosphataemia [Unknown]
  - Productive cough [Unknown]
  - Mucosal infection [Unknown]
  - Sinus tachycardia [Unknown]
  - Pollakiuria [Unknown]
  - Infection [Unknown]
  - Infestation [Unknown]
  - Fall [Unknown]
  - Tremor [Unknown]
  - Decreased appetite [Unknown]
  - Oedema peripheral [Unknown]
  - Constipation [Unknown]
  - Gait disturbance [Unknown]
  - Anal incontinence [Unknown]
  - Urinary tract pain [Unknown]
  - Urinary incontinence [Unknown]
  - Muscular weakness [Unknown]
  - Joint range of motion decreased [Unknown]

NARRATIVE: CASE EVENT DATE: 20190624
